FAERS Safety Report 16368730 (Version 1)
Quarter: 2019Q2

REPORT INFORMATION
  Report Type: Report from Study
  Country: CA (occurrence: CA)
  Receive Date: 20190529
  Receipt Date: 20190529
  Transmission Date: 20190711
  Serious: Yes (Other)
  Sender: FDA-Public Use
  Company Number: CA-HLSUS-2019-CA-000576

PATIENT
  Age: 42 Year
  Sex: Male

DRUGS (7)
  1. ARIPIPRAZOLE. [Concomitant]
     Active Substance: ARIPIPRAZOLE
     Dosage: 400 MG EVERY 4 WEEKS
     Route: 030
  2. OLANZAPINE. [Concomitant]
     Active Substance: OLANZAPINE
     Dosage: 10 MG TWICE DAILY
     Route: 048
  3. CLOZARIL [Suspect]
     Active Substance: CLOZAPINE
     Indication: SCHIZOPHRENIA
     Route: 048
     Dates: start: 199109, end: 200604
  4. RAMIPRIL. [Concomitant]
     Active Substance: RAMIPRIL
     Dosage: 7.5 MG EVERY MORNING
     Route: 048
  5. PROPANOLOL [Concomitant]
     Active Substance: PROPRANOLOL HYDROCHLORIDE
     Dosage: 10 MG TWICE DAILY
     Route: 048
  6. DIVALPROEX SODIUM. [Concomitant]
     Active Substance: DIVALPROEX SODIUM
     Dosage: 500 MG TWICE DAILY
     Route: 048
  7. LITHIUM. [Concomitant]
     Active Substance: LITHIUM
     Dosage: 600 MG BEDTIME
     Route: 048

REACTIONS (1)
  - Cerebrovascular accident [Unknown]

NARRATIVE: CASE EVENT DATE: 2006
